FAERS Safety Report 5021165-7 (Version None)
Quarter: 2006Q2

REPORT INFORMATION
  Report Type: 
  Country: None (occurrence: None)
  Receive Date: 20060605
  Receipt Date: 20060526
  Transmission Date: 20061013
  Serious: Yes (Other)
  Sender: FDA-Public Use
  Company Number: 2006069326

PATIENT
  Sex: Female

DRUGS (2)
  1. ZOLOFT [Suspect]
     Indication: ILL-DEFINED DISORDER
  2. XANAX [Suspect]
     Indication: ILL-DEFINED DISORDER

REACTIONS (2)
  - DEAFNESS UNILATERAL [None]
  - TINNITUS [None]
